FAERS Safety Report 6878337-6 (Version None)
Quarter: 2010Q3

REPORT INFORMATION
  Report Type: 
  Country: None (occurrence: None)
  Receive Date: 20100728
  Receipt Date: 20100720
  Transmission Date: 20110219
  Serious: Yes (Hospitalization)
  Sender: FDA-Public Use
  Company Number: US-JNJFOC-20100405727

PATIENT
  Sex: Female
  Weight: 66.68 kg

DRUGS (14)
  1. DURAGESIC-100 [Suspect]
     Indication: NECK PAIN
     Route: 062
  2. DURAGESIC-100 [Suspect]
     Indication: BACK PAIN
     Route: 062
  3. DURAGESIC-100 [Suspect]
     Route: 062
  4. DURAGESIC-100 [Suspect]
     Route: 062
  5. LYRICA [Suspect]
     Indication: NEUROPATHY PERIPHERAL
     Route: 048
  6. DEMEROL [Concomitant]
     Indication: BREAKTHROUGH PAIN
     Route: 048
  7. MORPHINE [Concomitant]
     Indication: BREAKTHROUGH PAIN
     Dosage: 10 MG, 20 MG/1CC
     Route: 048
  8. VALIUM [Concomitant]
     Indication: MUSCLE SPASMS
     Route: 048
  9. ROBAXIN [Concomitant]
     Indication: MUSCLE SPASMS
     Route: 048
  10. XANAX [Concomitant]
     Indication: NERVOUSNESS
     Route: 048
  11. CYMBALTA [Concomitant]
     Indication: NEUROPATHY PERIPHERAL
     Route: 048
  12. SIMVASTATIN [Concomitant]
     Indication: NEUROPATHY PERIPHERAL
     Dosage: AT BED TIME
     Route: 048
  13. PROMETHAZINE [Concomitant]
     Indication: NAUSEA
     Route: 048
  14. NASONEX [Concomitant]
     Indication: CHRONIC SINUSITIS
     Route: 065

REACTIONS (18)
  - AKATHISIA [None]
  - BACK PAIN [None]
  - BALANCE DISORDER [None]
  - BODY HEIGHT DECREASED [None]
  - BURNING SENSATION [None]
  - COORDINATION ABNORMAL [None]
  - DYSPNOEA [None]
  - FALL [None]
  - GASTROOESOPHAGEAL REFLUX DISEASE [None]
  - HYPERHIDROSIS [None]
  - HYPERTENSION [None]
  - HYPOAESTHESIA [None]
  - INTERVERTEBRAL DISCITIS [None]
  - MEMORY IMPAIRMENT [None]
  - NECK PAIN [None]
  - PNEUMONIA [None]
  - SPINAL CORD DISORDER [None]
  - WRONG TECHNIQUE IN DRUG USAGE PROCESS [None]
